FAERS Safety Report 5284411-0 (Version None)
Quarter: 2007Q2

REPORT INFORMATION
  Report Type: 
  Country: None (occurrence: None)
  Receive Date: 20070403
  Receipt Date: 20070328
  Transmission Date: 20071010
  Serious: Yes (Death)
  Sender: FDA-Public Use
  Company Number: 2007UW06281

PATIENT
  Age: 85 Year
  Sex: Male

DRUGS (1)
  1. NEXIUM [Suspect]
     Route: 048

REACTIONS (5)
  - BACK INJURY [None]
  - BLOOD CALCIUM DECREASED [None]
  - DEATH [None]
  - HIP FRACTURE [None]
  - RESORPTION BONE INCREASED [None]
